FAERS Safety Report 6171232-X (Version None)
Quarter: 2009Q2

REPORT INFORMATION
  Report Type: 
  Country: None (occurrence: None)
  Receive Date: 20090428
  Receipt Date: 20090428
  Transmission Date: 20091009
  Serious: Yes (Other)
  Sender: FDA-Public Use
  Company Number: None

PATIENT
  Age: 65 Year
  Sex: Female
  Weight: 87.0906 kg

DRUGS (2)
  1. KENALOG [Suspect]
     Indication: INTERVERTEBRAL DISC PROTRUSION
     Dosage: 47 MG 7-21 DAYS EPIDURAL
     Route: 008
  2. METHYLPREDNISOLONE [Suspect]
     Indication: ANTIINFLAMMATORY THERAPY
     Dosage: 21 4MG DOSE 6,5,4,3,2,1 DAILY PO
     Route: 048

REACTIONS (12)
  - ABDOMINAL DISTENSION [None]
  - APHONIA [None]
  - ASTHENIA [None]
  - ASTHMA [None]
  - BLOOD PRESSURE INCREASED [None]
  - CANDIDIASIS [None]
  - CHRONIC OBSTRUCTIVE PULMONARY DISEASE [None]
  - DYSPNOEA [None]
  - FATIGUE [None]
  - HAEMORRHAGE [None]
  - SKIN HAEMORRHAGE [None]
  - THROAT TIGHTNESS [None]
